FAERS Safety Report 4267224-8 (Version None)
Quarter: 2004Q1

REPORT INFORMATION
  Report Type: 
  Country: None (occurrence: None)
  Receive Date: 20040107
  Receipt Date: 20031218
  Transmission Date: 20041129
  Serious: Yes (Death, Hospitalization)
  Sender: FDA-Public Use
  Company Number: S03-BRA-04926-01

PATIENT
  Sex: Female

DRUGS (5)
  1. CIPRAMIL (CITALOPRAM HYDROBROMIDE) [Suspect]
     Indication: DEPRESSION
     Dosage: 20 MG QD PO
     Route: 048
     Dates: start: 20030101, end: 20031001
  2. VALPAKINE (VALPROATE SODIUM) [Concomitant]
  3. FUROSEMIDE [Concomitant]
  4. AAS (ACETYLSALICYLIC ACID) [Concomitant]
  5. CAPOTEN [Concomitant]

REACTIONS (3)
  - ORTHOSTATIC HYPOTENSION [None]
  - PANCREATITIS ACUTE [None]
  - SEPSIS [None]
